FAERS Safety Report 19447683 (Version 1)
Quarter: 2021Q2

REPORT INFORMATION
  Report Type: Spontaneous
  Country: US (occurrence: US)
  Receive Date: 20210622
  Receipt Date: 20210622
  Transmission Date: 20210717
  Serious: No
  Sender: FDA-Public Use
  Company Number: US-THERAPEUTICSMD-2021TMD01659

PATIENT
  Age: 63 Year
  Sex: Female
  Weight: 54.42 kg

DRUGS (7)
  1. UNSPECIFIED SUPPLEMENTS [Concomitant]
     Active Substance: UNSPECIFIED INGREDIENT
  2. IMVEXXY [Suspect]
     Active Substance: ESTRADIOL
     Indication: OESTROGEN THERAPY
  3. IMVEXXY [Suspect]
     Active Substance: ESTRADIOL
     Indication: CYSTITIS INTERSTITIAL
     Dosage: UNK
     Route: 067
  4. IMVEXXY [Suspect]
     Active Substance: ESTRADIOL
     Indication: OESTROGEN THERAPY
  5. ESTROGEN (ESTRADIOL) [Suspect]
     Active Substance: ESTRADIOL
     Indication: CYSTITIS INTERSTITIAL
     Dosage: 10 ?G, EVERY OTHER DAY
     Route: 067
  6. IMVEXXY [Suspect]
     Active Substance: ESTRADIOL
     Indication: CYSTITIS INTERSTITIAL
     Dosage: 10 ?G, 1X/DAY
     Route: 067
     Dates: start: 20210502, end: 20210503
  7. ESTROGEN (ESTRADIOL) [Suspect]
     Active Substance: ESTRADIOL
     Indication: OESTROGEN THERAPY

REACTIONS (2)
  - Headache [Recovered/Resolved]
  - Vaginal haemorrhage [Unknown]

NARRATIVE: CASE EVENT DATE: 20210502
